FAERS Safety Report 8586297 (Version 2)
Quarter: 2015Q1

REPORT INFORMATION
  Report Type: Report from Study
  Country: US (occurrence: US)
  Receive Date: 20120530
  Receipt Date: 20150312
  Transmission Date: 20150721
  Serious: Yes (Death)
  Sender: FDA-Public Use
  Company Number: US-ROCHE-1073210

PATIENT
  Sex: Male

DRUGS (4)
  1. XELODA [Suspect]
     Active Substance: CAPECITABINE
     Indication: RENAL CANCER
     Dosage: ONE TAB TWICE A DAY FOR 14 DAYS AND OFF FOR 7 DAYS.
     Route: 048
     Dates: start: 20101024
  2. CISPLATIN. [Concomitant]
     Active Substance: CISPLATIN
  3. GEMZAR [Concomitant]
     Active Substance: GEMCITABINE HYDROCHLORIDE
  4. XELODA [Suspect]
     Active Substance: CAPECITABINE
     Indication: HAEMOLYTIC URAEMIC SYNDROME

REACTIONS (1)
  - Death [Fatal]
